FAERS Safety Report 4410566-3 (Version None)
Quarter: 2004Q3

REPORT INFORMATION
  Report Type: 
  Country: None (occurrence: None)
  Receive Date: 20040726
  Receipt Date: 20040708
  Transmission Date: 20050211
  Serious: Yes (Hospitalization)
  Sender: FDA-Public Use
  Company Number: BE-JNJFOC-20040701959

PATIENT
  Age: 13 Year
  Sex: Female

DRUGS (1)
  1. VERMOX [Suspect]
     Dosage: 1 DOSE(S) ORAL
     Route: 048

REACTIONS (1)
  - ANAEMIA HAEMOLYTIC AUTOIMMUNE [None]
